FAERS Safety Report 7336209-7 (Version None)
Quarter: 2011Q1

REPORT INFORMATION
  Report Type: 
  Country: None (occurrence: None)
  Receive Date: 20110307
  Receipt Date: 20110302
  Transmission Date: 20110831
  Serious: Yes (Hospitalization, Other)
  Sender: FDA-Public Use
  Company Number: US-PFIZER INC-2011016269

PATIENT
  Sex: Female

DRUGS (10)
  1. METFORMIN HYDROCHLORIDE/SITAGLIPTIN [Concomitant]
     Dosage: 50/500 MG
  2. COREG [Concomitant]
     Dosage: UNK
  3. ACCUPRIL [Concomitant]
     Dosage: 15 MG, 2X/DAY
  4. PRADAXA [Suspect]
     Dosage: 150 MG, 2X/DAY
  5. DRONEDARONE [Suspect]
     Indication: ATRIAL FIBRILLATION
     Dosage: 400 MG, 2X/DAY
     Route: 048
     Dates: start: 20101112, end: 20101213
  6. LIPITOR [Suspect]
     Dosage: 40 MG, 1X/DAY
     Route: 048
     Dates: start: 20070101, end: 20101213
  7. ESOMEPRAZOLE [Concomitant]
     Dosage: UNK
  8. FUROSEMIDE [Concomitant]
     Dosage: 40 MG, AS NEEDED
  9. XANAX [Concomitant]
     Dosage: UNK
  10. WELLBUTRIN [Concomitant]
     Dosage: UNK

REACTIONS (4)
  - NAUSEA [None]
  - HEPATIC FAILURE [None]
  - ABDOMINAL DISCOMFORT [None]
  - VOMITING [None]
